FAERS Safety Report 13829286 (Version 1)
Quarter: 2017Q3

REPORT INFORMATION
  Report Type: Spontaneous
  Country: US (occurrence: US)
  Receive Date: 20170803
  Receipt Date: 20170803
  Transmission Date: 20171127
  Serious: No
  Sender: FDA-Public Use
  Company Number: None

PATIENT
  Age: 64 Year
  Sex: Female
  Weight: 179.8 kg

DRUGS (2)
  1. PRAVASTATIN 10MG [Suspect]
     Active Substance: PRAVASTATIN
     Indication: BLOOD CHOLESTEROL
     Route: 048
     Dates: start: 20170712, end: 20170713
  2. PRAVASTATIN 10MG [Suspect]
     Active Substance: PRAVASTATIN
     Indication: DIABETES MELLITUS
     Route: 048
     Dates: start: 20170712, end: 20170713

REACTIONS (1)
  - Bladder pain [None]

NARRATIVE: CASE EVENT DATE: 20170713
